FAERS Safety Report 6696315-7 (Version None)
Quarter: 2010Q2

REPORT INFORMATION
  Report Type: 
  Country: None (occurrence: None)
  Receive Date: 20100421
  Receipt Date: 20100331
  Transmission Date: 20101027
  Serious: Yes (Other)
  Sender: FDA-Public Use
  Company Number: 7000089

PATIENT
  Age: 11 Year
  Sex: Male
  Weight: 31 kg

DRUGS (3)
  1. SAIZEN [Suspect]
     Indication: GROWTH HORMONE DEFICIENCY
     Dosage: 3 IU, 1 IN 1 D, SUBCUTANEOUS; 4 IU, 5 IN 1 WK, SUBCUTANEOUS; 5 IU, 2 IN 1 WK, SUBCUTANEOUS
     Route: 058
     Dates: start: 20090301, end: 20090901
  2. SAIZEN [Suspect]
     Indication: GROWTH HORMONE DEFICIENCY
     Dosage: 3 IU, 1 IN 1 D, SUBCUTANEOUS; 4 IU, 5 IN 1 WK, SUBCUTANEOUS; 5 IU, 2 IN 1 WK, SUBCUTANEOUS
     Route: 058
     Dates: start: 20091001
  3. SAIZEN [Suspect]
     Indication: GROWTH HORMONE DEFICIENCY
     Dosage: 3 IU, 1 IN 1 D, SUBCUTANEOUS; 4 IU, 5 IN 1 WK, SUBCUTANEOUS; 5 IU, 2 IN 1 WK, SUBCUTANEOUS
     Route: 058
     Dates: start: 20091001

REACTIONS (2)
  - ARTHRALGIA [None]
  - EXOSTOSIS [None]
